FAERS Safety Report 19375599 (Version 3)
Quarter: 2022Q3

REPORT INFORMATION
  Report Type: Spontaneous
  Country: JP (occurrence: JP)
  Receive Date: 20210604
  Receipt Date: 20220714
  Transmission Date: 20221026
  Serious: Yes (Hospitalization)
  Sender: FDA-Public Use
  Company Number: JP-GSKNCCC-CASE-01224955_AE-45150

PATIENT

DRUGS (1)
  1. DUTASTERIDE [Suspect]
     Active Substance: DUTASTERIDE
     Dosage: UNK
     Route: 050

REACTIONS (4)
  - Hospitalisation [Unknown]
  - Product use issue [Unknown]
  - Wrong technique in product usage process [Unknown]
  - Off label use [Unknown]
